FAERS Safety Report 18194259 (Version 2)
Quarter: 2020Q3

REPORT INFORMATION
  Report Type: Report from Study
  Country: US (occurrence: US)
  Receive Date: 20200825
  Receipt Date: 20200828
  Transmission Date: 20201103
  Serious: Yes (Disabling, Other)
  Sender: FDA-Public Use
  Company Number: US-SA-2016SA202906

PATIENT

DRUGS (4)
  1. SKELAXIN [METAXALONE] [Concomitant]
     Indication: MUSCLE SPASTICITY
     Dosage: UNK
  2. SKELAXIN [METAXALONE] [Concomitant]
     Indication: MOOD SWINGS
     Dosage: INCREASING DOSE
  3. ALEMTUZUMAB [Suspect]
     Active Substance: ALEMTUZUMAB
     Indication: MULTIPLE SCLEROSIS
     Dosage: 12 MG,QD
     Route: 041
     Dates: start: 20161018, end: 20161020
  4. ALEMTUZUMAB [Suspect]
     Active Substance: ALEMTUZUMAB
     Dosage: 12 MG, QD
     Route: 042
     Dates: start: 20150810, end: 20150814

REACTIONS (17)
  - Condition aggravated [Not Recovered/Not Resolved]
  - Disability [Not Recovered/Not Resolved]
  - Off label use [Unknown]
  - Feeling abnormal [Recovered/Resolved]
  - Dysarthria [Not Recovered/Not Resolved]
  - Fatigue [Recovered/Resolved]
  - Flushing [Recovered/Resolved]
  - Frustration tolerance decreased [Not Recovered/Not Resolved]
  - Alopecia [Recovered/Resolved]
  - Memory impairment [Unknown]
  - Lymphocyte count decreased [Recovering/Resolving]
  - Skin odour abnormal [Recovered/Resolved]
  - Lymphocyte count abnormal [Not Recovered/Not Resolved]
  - Hyperhidrosis [Recovered/Resolved]
  - Impaired work ability [Not Recovered/Not Resolved]
  - Muscle spasticity [Not Recovered/Not Resolved]
  - Mood swings [Recovered/Resolved]

NARRATIVE: CASE EVENT DATE: 2016
